FAERS Safety Report 17087145 (Version 1)
Quarter: 2019Q4

REPORT INFORMATION
  Report Type: Spontaneous
  Country: US (occurrence: US)
  Receive Date: 20191128
  Receipt Date: 20191128
  Transmission Date: 20200122
  Serious: Yes (Other)
  Sender: FDA-Public Use
  Company Number: US-LUPIN PHARMACEUTICALS INC.-2019-07732

PATIENT
  Age: 60 Year
  Sex: Male

DRUGS (2)
  1. BUDESONIDE INHALATION [Suspect]
     Active Substance: BUDESONIDE
     Dosage: UNK (MULTIPLE PUFFS OF THE BUDESONIDE THROUGHOUT THE DAY, RECEIVING A CUMULATIVE DOSE THAT WAS TEN-F
  2. BUDESONIDE INHALATION [Suspect]
     Active Substance: BUDESONIDE
     Indication: CHRONIC OBSTRUCTIVE PULMONARY DISEASE
     Dosage: UNK

REACTIONS (3)
  - Overdose [Unknown]
  - Adrenal insufficiency [Unknown]
  - Hypothalamic pituitary adrenal axis suppression [Unknown]
